FAERS Safety Report 4750176-1 (Version None)
Quarter: 2005Q3

REPORT INFORMATION
  Report Type: 
  Country: None (occurrence: None)
  Receive Date: 20050823
  Receipt Date: 20050811
  Transmission Date: 20060218
  Serious: Yes (Death, Life-Threatening, Hospitalization)
  Sender: FDA-Public Use
  Company Number: CA-JNJFOC-20050700956

PATIENT
  Sex: Male
  Weight: 96 kg

DRUGS (4)
  1. REMICADE [Suspect]
     Indication: RHEUMATOID ARTHRITIS
     Dosage: 100MG/VIAL
     Route: 042
  2. ARAVA [Concomitant]
     Indication: RHEUMATOID ARTHRITIS
     Route: 048
  3. LOSEC [Concomitant]
  4. IRON [Concomitant]

REACTIONS (2)
  - AORTIC ANEURYSM RUPTURE [None]
  - JOINT ARTHROPLASTY [None]
